FAERS Safety Report 8630306 (Version 2)
Quarter: 2013Q4

REPORT INFORMATION
  Report Type: Spontaneous
  Country: US (occurrence: US)
  Receive Date: 20120622
  Receipt Date: 20131122
  Transmission Date: 20140711
  Serious: Yes (Hospitalization, Other)
  Sender: FDA-Public Use
  Company Number: US-ROCHE-1078156

PATIENT
  Age: 17 Year
  Sex: Male
  Weight: 72.64 kg

DRUGS (2)
  1. ACCUTANE [Suspect]
     Indication: ACNE
     Route: 048
     Dates: start: 20010625, end: 200111
  2. ACCUTANE [Suspect]
     Route: 065
     Dates: end: 200112

REACTIONS (9)
  - Colitis ulcerative [Unknown]
  - Crohn^s disease [Unknown]
  - Inflammatory bowel disease [Unknown]
  - Dry skin [Unknown]
  - Epistaxis [Unknown]
  - Lip dry [Unknown]
  - Diarrhoea [Recovered/Resolved]
  - Excoriation [Unknown]
  - Arthralgia [Unknown]
